FAERS Safety Report 15935762 (Version 1)
Quarter: 2019Q1

REPORT INFORMATION
  Report Type: Spontaneous
  Country: US (occurrence: US)
  Receive Date: 20190208
  Receipt Date: 20190208
  Transmission Date: 20190417
  Serious: No
  Sender: FDA-Public Use
  Company Number: US-JNJFOC-20190117968

PATIENT
  Age: 62 Year
  Sex: Male

DRUGS (2)
  1. ZYRTEC [Suspect]
     Active Substance: CETIRIZINE HYDROCHLORIDE
     Route: 065
  2. ZYRTEC [Suspect]
     Active Substance: CETIRIZINE HYDROCHLORIDE
     Indication: WHEEZING
     Route: 065

REACTIONS (8)
  - Agitation [Unknown]
  - Therapeutic response unexpected [Unknown]
  - Off label use [Unknown]
  - Feeling abnormal [Unknown]
  - Coordination abnormal [Unknown]
  - Somnolence [Unknown]
  - Product use in unapproved indication [Unknown]
  - Visual impairment [Unknown]
